FAERS Safety Report 7134917-4 (Version None)
Quarter: 2010Q4

REPORT INFORMATION
  Report Type: 
  Country: None (occurrence: None)
  Receive Date: 20101129
  Receipt Date: 20101129
  Transmission Date: 20110411
  Serious: Yes (Hospitalization)
  Sender: FDA-Public Use
  Company Number: None

PATIENT
  Sex: Female
  Weight: 72.5755 kg

DRUGS (2)
  1. ATRIPLA [Suspect]
     Indication: IMMUNE SYSTEM DISORDER
     Dosage: 1 ONE TIME A DAY PO
     Route: 048
     Dates: start: 20090901, end: 20101101
  2. ATRIPLA [Concomitant]

REACTIONS (2)
  - FOREIGN BODY [None]
  - TABLET ISSUE [None]
